FAERS Safety Report 5843845-3 (Version None)
Quarter: 2008Q3

REPORT INFORMATION
  Report Type: 
  Country: None (occurrence: None)
  Receive Date: 20080811
  Receipt Date: 20080724
  Transmission Date: 20090109
  Serious: Yes (Hospitalization)
  Sender: FDA-Public Use
  Company Number: 8035319

PATIENT
  Age: 68 Year
  Sex: Female

DRUGS (4)
  1. KEPPRA [Suspect]
     Indication: STATUS EPILEPTICUS
     Dosage: 1 G 2/D IVI
     Route: 042
     Dates: start: 20080712
  2. KEPPRA [Suspect]
     Indication: STATUS EPILEPTICUS
     Dosage: PO
     Route: 048
  3. GARDENAL /00023201/ [Suspect]
     Indication: STATUS EPILEPTICUS
     Dosage: 600 MG 1/D IVI
     Route: 042
     Dates: start: 20080710, end: 20080710
  4. THIOPENTAL WITH SODIUM CARBONATE [Suspect]
     Indication: STATUS EPILEPTICUS
     Dosage: 12 G /D IV
     Route: 042
     Dates: start: 20080711, end: 20080711

REACTIONS (2)
  - CHOLESTASIS [None]
  - CYTOLYTIC HEPATITIS [None]
